FAERS Safety Report 12933560 (Version 1)
Quarter: 2016Q4

REPORT INFORMATION
  Report Type: Spontaneous
  Country: CN (occurrence: CN)
  Receive Date: 20161111
  Receipt Date: 20161111
  Transmission Date: 20170207
  Serious: Yes (Hospitalization)
  Sender: FDA-Public Use
  Company Number: CN-GLAXOSMITHKLINE-CN2016GSK160229

PATIENT
  Age: 60 Year
  Sex: Male

DRUGS (3)
  1. FLIXOTIDE INHALER [Suspect]
     Active Substance: FLUTICASONE PROPIONATE
     Indication: ASTHMA
     Dosage: 2 PUFF(S), BID (MORNING + NIGHT)
     Route: 055
  2. VENTOLIN HFA [Suspect]
     Active Substance: ALBUTEROL SULFATE
     Indication: ASTHMA
     Dosage: 1 PUFF(S), UNK
     Route: 055
  3. FLIXOTIDE INHALER [Suspect]
     Active Substance: FLUTICASONE PROPIONATE
     Dosage: 3 PUFF(S), QD (2 PUFFS IN THE MORNING AND 1 PUFF AT NIGHT OR 1 PUFF IN THE MORNING AND 2 PUFFS AT NI
     Route: 055

REACTIONS (4)
  - Temperature intolerance [Not Recovered/Not Resolved]
  - Inappropriate schedule of drug administration [Unknown]
  - Asthma [Not Recovered/Not Resolved]
  - Drug ineffective [Not Recovered/Not Resolved]
